FAERS Safety Report 7168050-2 (Version None)
Quarter: 2010Q4

REPORT INFORMATION
  Report Type: 
  Country: None (occurrence: None)
  Receive Date: 20101202
  Receipt Date: 20101119
  Transmission Date: 20110411
  Serious: Yes (Other)
  Sender: FDA-Public Use
  Company Number: 2010BN000064

PATIENT
  Age: 31 Year
  Sex: Female

DRUGS (11)
  1. CARMUSTINE [Suspect]
     Indication: T-CELL LYMPHOMA
  2. ETOPOSIDE [Suspect]
     Indication: T-CELL LYMPHOMA
  3. CYTARABINE [Suspect]
     Indication: T-CELL LYMPHOMA
  4. MELPHALAN HYDROCHLORIDE [Suspect]
     Indication: T-CELL LYMPHOMA
  5. CYCLOPHOSPHAMIDE [Concomitant]
  6. DOXORUBICIN HCL [Concomitant]
  7. VINCRISTINE [Concomitant]
  8. PREDNISONE [Concomitant]
  9. IFOSFAMIDE [Concomitant]
  10. CARBOPLATIN [Concomitant]
  11. ETOPOSIDE [Concomitant]

REACTIONS (4)
  - CARDIAC TAMPONADE [None]
  - LUNG INFILTRATION [None]
  - PERICARDIAL EFFUSION [None]
  - PLEURAL EFFUSION [None]
